FAERS Safety Report 25003272 (Version 1)
Quarter: 2025Q1

REPORT INFORMATION
  Report Type: Spontaneous
  Country: PL (occurrence: PL)
  Receive Date: 20250224
  Receipt Date: 20250224
  Transmission Date: 20250408
  Serious: Yes (Other)
  Sender: ACCORD
  Company Number: PL-MLMSERVICE-20250207-PI401915-00140-1

PATIENT
  Age: 36 Year
  Sex: Male

DRUGS (8)
  1. ETOPOSIDE [Suspect]
     Active Substance: ETOPOSIDE
     Indication: Leukaemic infiltration extramedullary
  2. CYCLOPHOSPHAMIDE [Suspect]
     Active Substance: CYCLOPHOSPHAMIDE
     Indication: Leukaemic infiltration extramedullary
  3. ETOPOSIDE [Suspect]
     Active Substance: ETOPOSIDE
     Indication: Leukaemic cardiac infiltration
  4. CYCLOPHOSPHAMIDE [Suspect]
     Active Substance: CYCLOPHOSPHAMIDE
     Indication: Salivary gland neoplasm
  5. CYCLOPHOSPHAMIDE [Suspect]
     Active Substance: CYCLOPHOSPHAMIDE
     Indication: Acute lymphocytic leukaemia recurrent
  6. ETOPOSIDE [Suspect]
     Active Substance: ETOPOSIDE
     Indication: Salivary gland neoplasm
  7. ETOPOSIDE [Suspect]
     Active Substance: ETOPOSIDE
     Indication: Acute lymphocytic leukaemia recurrent
  8. CYCLOPHOSPHAMIDE [Suspect]
     Active Substance: CYCLOPHOSPHAMIDE
     Indication: Leukaemic cardiac infiltration

REACTIONS (2)
  - Pancytopenia [Unknown]
  - Off label use [Unknown]
